FAERS Safety Report 8090375-7 (Version None)
Quarter: 2012Q1

REPORT INFORMATION
  Report Type: 
  Country: None (occurrence: None)
  Receive Date: 20120129
  Receipt Date: 20111128
  Transmission Date: 20120608
  Serious: Yes (Other)
  Sender: FDA-Public Use
  Company Number: US-ABBOTT-11P-163-0879481-00

PATIENT
  Sex: Male
  Weight: 74.91 kg

DRUGS (16)
  1. CALCIUM CITRATE WITH VIAMIN D [Concomitant]
     Indication: MINERAL SUPPLEMENTATION
     Route: 048
  2. BALSALAZIDE DISODIUM [Concomitant]
     Indication: CROHN'S DISEASE
     Route: 048
  3. HYDROCHLOROTHIAZIDE [Concomitant]
     Indication: HYPERTENSION
     Route: 048
  4. HUMALOG INSULIN PUMP [Concomitant]
     Indication: TYPE 1 DIABETES MELLITUS
     Dates: start: 19940101
  5. LOSARTAN POTASSIUM [Concomitant]
     Indication: HYPERTENSION
     Route: 048
  6. SIMVASTATIN [Concomitant]
     Indication: BLOOD CHOLESTEROL INCREASED
     Route: 048
  7. VITAMIN E [Concomitant]
     Indication: VITAMIN SUPPLEMENTATION
     Route: 048
  8. ASCORBIC ACID [Concomitant]
     Indication: VITAMIN SUPPLEMENTATION
     Route: 048
  9. CARVEDILOL [Concomitant]
     Indication: HYPERTENSION
     Dates: start: 20100101
  10. ASPIRIN [Concomitant]
     Indication: PRODUCT USED FOR UNKNOWN INDICATION
     Dosage: LOW DOSE, DAILY
     Route: 048
  11. ZINC SULFATE [Concomitant]
     Indication: VITAMIN SUPPLEMENTATION
     Route: 048
  12. VITAMIN D [Concomitant]
     Indication: VITAMIN SUPPLEMENTATION
     Route: 048
  13. OMEPRAZOLE [Concomitant]
     Indication: GASTROOESOPHAGEAL REFLUX DISEASE
     Route: 048
  14. HUMIRA [Suspect]
     Indication: CROHN'S DISEASE
     Dates: start: 20071201
  15. FOLIC ACID [Concomitant]
     Indication: CROHN'S DISEASE
     Route: 048
  16. AMBIEN [Concomitant]
     Indication: INSOMNIA
     Dosage: AT BEDTIME
     Route: 048

REACTIONS (9)
  - PAIN IN EXTREMITY [None]
  - MUSCLE RUPTURE [None]
  - ARTHRALGIA [None]
  - BLISTER [None]
  - SKIN BURNING SENSATION [None]
  - PAIN [None]
  - HERPES ZOSTER [None]
  - PRURITUS [None]
  - CATARACT [None]
